FAERS Safety Report 25013998 (Version 1)
Quarter: 2025Q1

REPORT INFORMATION
  Report Type: Spontaneous
  Country: GR (occurrence: GR)
  Receive Date: 20250226
  Receipt Date: 20250226
  Transmission Date: 20250409
  Serious: Yes (Death)
  Sender: PFIZER
  Company Number: GR-PFIZER INC-PV202500023070

PATIENT
  Age: 75 Year
  Sex: Female

DRUGS (2)
  1. PAXLOVID [Suspect]
     Active Substance: NIRMATRELVIR\RITONAVIR
     Indication: COVID-19 treatment
     Dosage: [NIRMATRELVIR 300 MG]/[RITONAVIR 100 MG]; 2X/DAY
     Dates: start: 202502
  2. ELIQUIS [Concomitant]
     Active Substance: APIXABAN
     Indication: Atrial fibrillation
     Dosage: 2.5 MG, 2X/DAY

REACTIONS (3)
  - Drug ineffective [Fatal]
  - Cerebrovascular accident [Fatal]
  - Loss of consciousness [Fatal]

NARRATIVE: CASE EVENT DATE: 20250201
